FAERS Safety Report 7370999-2 (Version None)
Quarter: 2011Q1

REPORT INFORMATION
  Report Type: 
  Country: None (occurrence: None)
  Receive Date: 20110321
  Receipt Date: 20110321
  Transmission Date: 20110831
  Serious: Yes (Life-Threatening, Hospitalization)
  Sender: FDA-Public Use
  Company Number: None

PATIENT
  Age: 55 Year
  Sex: Female
  Weight: 54.4316 kg

DRUGS (1)
  1. MIDODRINE HYDROCHLORIDE [Suspect]
     Indication: BRADYCARDIA
     Dosage: 2 PILLS 3XDAY PO
     Route: 048
     Dates: start: 20110315, end: 20110316

REACTIONS (6)
  - BLOOD PRESSURE INCREASED [None]
  - VOMITING [None]
  - HEART RATE DECREASED [None]
  - HYPOTENSION [None]
  - HEADACHE [None]
  - SHOCK [None]
